FAERS Safety Report 6408346-2 (Version None)
Quarter: 2009Q4

REPORT INFORMATION
  Report Type: 
  Country: None (occurrence: None)
  Receive Date: 20091021
  Receipt Date: 20091012
  Transmission Date: 20100525
  Serious: Yes (Other)
  Sender: FDA-Public Use
  Company Number: PHHY2009FI38555

PATIENT
  Age: 75 Year
  Sex: Female

DRUGS (2)
  1. EXELON [Suspect]
     Indication: DEMENTIA ALZHEIMER'S TYPE
     Dosage: 4.6 MG PER DAY
     Route: 062
  2. EXELON [Suspect]
     Dosage: 9.5 MG PER DAY
     Route: 062

REACTIONS (2)
  - HEADACHE [None]
  - PETIT MAL EPILEPSY [None]
